FAERS Safety Report 5607603-7 (Version None)
Quarter: 2008Q1

REPORT INFORMATION
  Report Type: 
  Country: None (occurrence: None)
  Receive Date: 20080130
  Receipt Date: 20080122
  Transmission Date: 20080703
  Serious: Yes (Other)
  Sender: FDA-Public Use
  Company Number: PHBS2007BR20278

PATIENT
  Age: 45 Year
  Sex: Female
  Weight: 49 kg

DRUGS (8)
  1. TRILEPTAL [Suspect]
     Indication: EPILEPSY
     Dosage: 300 MG, QD
     Route: 048
     Dates: start: 20050101
  2. TOPAMAX [Concomitant]
     Indication: EPILEPSY
  3. OLCADIL [Concomitant]
     Indication: INSOMNIA
     Dosage: 1 TAB/DAY
     Route: 048
     Dates: start: 19980101, end: 20030101
  4. TEGRETOL [Concomitant]
     Indication: EPILEPSY
     Dosage: 1 TAB MORNING/1 TAB NIGHT
     Route: 048
     Dates: start: 19990101
  5. DEPAKENE [Concomitant]
     Dosage: 1000 MG/DAY
     Dates: start: 19990101
  6. LAMOTRIGINE [Concomitant]
     Indication: EPILEPSY
     Dosage: 150 MG/DAY
     Route: 048
     Dates: start: 19990101
  7. VISSERIM [Suspect]
     Indication: THALASSAEMIA
     Dosage: 1 TAB/DAY
     Route: 048
     Dates: start: 20030101, end: 20070701
  8. ANTIEPILEPTICS [Concomitant]
     Dosage: 2 TAB/DAY
     Dates: start: 19980101, end: 19990101

REACTIONS (4)
  - BRAIN OPERATION [None]
  - EATING DISORDER [None]
  - NERVOUS SYSTEM DISORDER [None]
  - WEIGHT DECREASED [None]
